FAERS Safety Report 9843189 (Version 1)
Quarter: 2014Q1

REPORT INFORMATION
  Report Type: Spontaneous
  Country: US (occurrence: US)
  Receive Date: 20140124
  Receipt Date: 20140124
  Transmission Date: 20141002
  Serious: Yes (Life-Threatening)
  Sender: FDA-Public Use
  Company Number: US-B.I. PHARMACEUTICALS,INC./RIDGEFIELD-2014-BI-03278BP

PATIENT
  Sex: Female
  Weight: 82 kg

DRUGS (12)
  1. AGGRENOX [Suspect]
     Indication: CEREBROVASCULAR ACCIDENT PROPHYLAXIS
     Dosage: STRENGTH: 25 MG / 200 MG; DAILY DOSE: 50MG/400MCG
     Route: 048
     Dates: start: 2007
  2. OMEPRAZOLE [Concomitant]
  3. SIMVASTATIN [Concomitant]
     Route: 048
  4. ZETIA [Concomitant]
     Route: 048
  5. TRAMADOL [Concomitant]
     Route: 048
  6. VITAMIN D [Concomitant]
     Route: 048
  7. PROPAFENONE [Concomitant]
     Route: 048
  8. SYNTHROID [Concomitant]
     Route: 048
  9. MULTIVITAMIN [Concomitant]
     Route: 048
  10. XALATAN EYE DROPS [Concomitant]
     Indication: MACULAR DEGENERATION
  11. ALPHAGAN [Concomitant]
     Indication: MACULAR DEGENERATION
  12. POLYETHYLENE GLYCOL [Concomitant]
     Indication: CONSTIPATION
     Route: 048

REACTIONS (1)
  - Cerebrovascular accident [Recovered/Resolved with Sequelae]
